FAERS Safety Report 22809621 (Version 2)
Quarter: 2024Q4

REPORT INFORMATION
  Report Type: Spontaneous
  Country: US (occurrence: US)
  Receive Date: 20230810
  Receipt Date: 20241017
  Transmission Date: 20250115
  Serious: No
  Sender: SANDOZ
  Company Number: US-002147023-NVSC2023US147688

PATIENT

DRUGS (4)
  1. PREDNISOLONE ACETATE [Suspect]
     Active Substance: PREDNISOLONE ACETATE
     Indication: Retinal detachment
     Dosage: UNK, TID (5 ML)
     Route: 047
     Dates: start: 20230525
  2. PREDNISOLONE ACETATE [Suspect]
     Active Substance: PREDNISOLONE ACETATE
     Indication: Cataract operation
     Dosage: UNK
     Route: 065
     Dates: start: 202210
  3. PREDNISOLONE ACETATE [Suspect]
     Active Substance: PREDNISOLONE ACETATE
     Indication: Glaucoma
  4. PREDNISOLONE ACETATE [Suspect]
     Active Substance: PREDNISOLONE ACETATE
     Indication: Post procedural complication

REACTIONS (3)
  - Eye pain [Unknown]
  - Eye irritation [Unknown]
  - Injury corneal [Unknown]

NARRATIVE: CASE EVENT DATE: 20230525
